FAERS Safety Report 4452274-9 (Version None)
Quarter: 2004Q3

REPORT INFORMATION
  Report Type: 
  Country: None (occurrence: None)
  Receive Date: 20040917
  Receipt Date: 19990318
  Transmission Date: 20050211
  Serious: Yes (Hospitalization)
  Sender: FDA-Public Use
  Company Number: B045099

PATIENT
  Age: 35 Year
  Sex: Male

DRUGS (4)
  1. ZERIT [Suspect]
     Indication: HIV INFECTION
     Dosage: STOPPED 13-JAN-2000, RESTARTED 11-MAR-2000 TO 31-MAR-2001, RESTARTED 03-FEB-2003
     Route: 048
     Dates: start: 19970731
  2. EPIVIR [Suspect]
     Indication: HIV INFECTION
     Dosage: STOPPED 13-JAN-2000, RESTARTED 11-MAR-2000 TO 31-MAR-2001, RESTARTED 18-MAR-2003
     Route: 048
     Dates: start: 19970724
  3. INVIRASE [Suspect]
     Indication: HIV INFECTION
     Dosage: STOPPED 13-JAN-2000, RESTARTED 11-MAR-2000 TO 31-MAR-2001, RESTARTED 18-MAR-2003
     Dates: start: 19970417, end: 20030331
  4. CROSS EIGHT M [Concomitant]
     Dates: start: 20030203

REACTIONS (2)
  - HEPATIC FUNCTION ABNORMAL [None]
  - HEPATITIS C [None]
